FAERS Safety Report 19731120 (Version 1)
Quarter: 2021Q3

REPORT INFORMATION
  Report Type: Spontaneous
  Country: PT (occurrence: PT)
  Receive Date: 20210821
  Receipt Date: 20210821
  Transmission Date: 20211014
  Serious: Yes (Disabling, Other)
  Sender: FDA-Public Use
  Company Number: PT-ACCORD-230773

PATIENT
  Age: 79 Year
  Sex: Male

DRUGS (3)
  1. QUETIAPINE/QUETIAPINE FUMARATE [Suspect]
     Active Substance: QUETIAPINE FUMARATE
     Indication: INSOMNIA
     Dosage: INCREASED?TO 200MG/DAY
  2. RISPERIDONE. [Suspect]
     Active Substance: RISPERIDONE
     Indication: PSYCHOTIC DISORDER
     Dosage: TITRATED UP TO 4MG/DAY
  3. VALPROIC ACID. [Concomitant]
     Active Substance: VALPROIC ACID
     Indication: PSYCHOTIC DISORDER

REACTIONS (4)
  - Psychomotor retardation [Unknown]
  - Thrombocytopenia [Unknown]
  - Drug ineffective [Unknown]
  - Off label use [Unknown]
